FAERS Safety Report 5091488-4 (Version None)
Quarter: 2006Q3

REPORT INFORMATION
  Report Type: 
  Country: None (occurrence: None)
  Receive Date: 20060824
  Receipt Date: 20060815
  Transmission Date: 20061208
  Serious: Yes (Death, Hospitalization)
  Sender: FDA-Public Use
  Company Number: 2006BI007074

PATIENT
  Age: 63 Year
  Sex: Female
  Weight: 159 kg

DRUGS (9)
  1. ZEVALIN [Suspect]
     Indication: CENTRAL NERVOUS SYSTEM LYMPHOMA
     Dosage: 1X; IV
     Route: 042
  2. ZEVALIN [Suspect]
     Indication: CENTRAL NERVOUS SYSTEM LYMPHOMA
     Dosage: 15 MBQ/KG; 1X; IV
     Route: 042
     Dates: start: 20060330, end: 20060330
  3. RITUXIMAB [Concomitant]
  4. FORTECORTIN [Concomitant]
  5. CARMEN [Concomitant]
  6. COSAAR PLUS [Concomitant]
  7. PANTOZOL [Concomitant]
  8. VITAMIN B COMPLEX CAP [Concomitant]
  9. AMPHO-MORONAL [Concomitant]

REACTIONS (10)
  - ACUTE RESPIRATORY DISTRESS SYNDROME [None]
  - ASTHENIA [None]
  - BLOOD GLUCOSE INCREASED [None]
  - GENERAL PHYSICAL HEALTH DETERIORATION [None]
  - MULTI-ORGAN FAILURE [None]
  - NEUTROPENIA [None]
  - PANCYTOPENIA [None]
  - PNEUMONIA [None]
  - SEPSIS [None]
  - THERAPY NON-RESPONDER [None]
